FAERS Safety Report 10805181 (Version 1)
Quarter: 2015Q1

REPORT INFORMATION
  Report Type: Spontaneous
  Country: US (occurrence: US)
  Receive Date: 20150217
  Receipt Date: 20150217
  Transmission Date: 20150721
  Serious: Yes (Hospitalization, Other)
  Sender: FDA-Public Use
  Company Number: US-BAUSCH-BL-2014-004260

PATIENT
  Age: 16 Year
  Sex: Female
  Weight: 54.42 kg

DRUGS (12)
  1. XYREM [Suspect]
     Active Substance: SODIUM OXYBATE
     Route: 048
  2. XYREM [Suspect]
     Active Substance: SODIUM OXYBATE
     Indication: NARCOLEPSY
     Route: 048
     Dates: start: 201312
  3. XYREM [Suspect]
     Active Substance: SODIUM OXYBATE
     Dosage: 3.75-4 G
     Route: 048
  4. ATROPINE [Suspect]
     Active Substance: ATROPINE
     Indication: RESPIRATORY RATE DECREASED
  5. BIRTH CONTROL PILLS [Concomitant]
     Active Substance: UNSPECIFIED INGREDIENT
     Indication: ACNE
  6. ATROPINE [Suspect]
     Active Substance: ATROPINE
     Indication: HYPOTENSION
  7. XYREM [Suspect]
     Active Substance: SODIUM OXYBATE
     Indication: CATAPLEXY
     Dosage: 4-4.5 G
     Route: 048
  8. ATROPINE [Suspect]
     Active Substance: ATROPINE
     Indication: HEART RATE DECREASED
  9. PROVIGIL [Concomitant]
     Active Substance: MODAFINIL
     Indication: NARCOLEPSY
  10. PRILOSEC [Concomitant]
     Active Substance: OMEPRAZOLE MAGNESIUM
     Indication: GASTROOESOPHAGEAL REFLUX DISEASE
  11. PROZAC [Suspect]
     Active Substance: FLUOXETINE HYDROCHLORIDE
     Indication: ANXIETY
     Route: 048
     Dates: start: 20140114
  12. NUVIGIL [Concomitant]
     Active Substance: ARMODAFINIL
     Indication: NARCOLEPSY
     Dates: start: 201401

REACTIONS (13)
  - Tonsillar hypertrophy [Not Recovered/Not Resolved]
  - Tonsillolith [Not Recovered/Not Resolved]
  - Pain [Recovering/Resolving]
  - Heart rate decreased [Unknown]
  - Crepitations [Recovered/Resolved]
  - Vocal cord disorder [Unknown]
  - Condition aggravated [Not Recovered/Not Resolved]
  - Pneumomediastinum [Recovered/Resolved]
  - Off label use [Not Recovered/Not Resolved]
  - Hypotension [Recovered/Resolved]
  - Abasia [Unknown]
  - Blood pressure increased [Unknown]
  - Dyspnoea [Unknown]

NARRATIVE: CASE EVENT DATE: 201312
